FAERS Safety Report 12326260 (Version 1)
Quarter: 2016Q2

REPORT INFORMATION
  Report Type: Spontaneous
  Country: US (occurrence: None)
  Receive Date: 20160502
  Receipt Date: 20160502
  Transmission Date: 20160815
  Serious: Yes (Disabling)
  Sender: FDA-Public Use
  Company Number: None

PATIENT
  Age: 81 Year
  Sex: Male
  Weight: 85.28 kg

DRUGS (7)
  1. FIESTERIDE [Concomitant]
  2. NORVASC [Suspect]
     Active Substance: AMLODIPINE BESYLATE
     Indication: HYPERTENSION
     Route: 048
  3. PANTOPRAZOLE SODIUM. [Suspect]
     Active Substance: PANTOPRAZOLE SODIUM
     Indication: BARRETT^S OESOPHAGUS
     Dosage: 1 TABLET(S) IN THE MORNING TAKEN BY MOUTH
     Route: 048
  4. ASA [Concomitant]
     Active Substance: ASPIRIN
  5. PLETAL [Concomitant]
     Active Substance: CILOSTAZOL
  6. HCTZ [Concomitant]
     Active Substance: HYDROCHLOROTHIAZIDE
  7. DAILY VIT/MIN SUPPLEMENT [Concomitant]

REACTIONS (2)
  - Optic ischaemic neuropathy [None]
  - Blood pressure decreased [None]

NARRATIVE: CASE EVENT DATE: 20150818
